FAERS Safety Report 8322888-4 (Version None)
Quarter: 2012Q2

REPORT INFORMATION
  Report Type: 
  Country: None (occurrence: None)
  Receive Date: 20120430
  Receipt Date: 20120426
  Transmission Date: 20120825
  Serious: Yes (Other)
  Sender: FDA-Public Use
  Company Number: CHPA2012US009432

PATIENT
  Age: 70 Year
  Sex: Female

DRUGS (1)
  1. PREVACID 24 HR [Suspect]
     Indication: GASTROOESOPHAGEAL REFLUX DISEASE
     Dosage: 15-30 MG, PRN
     Route: 048
     Dates: start: 20090101

REACTIONS (11)
  - BREAST MASS [None]
  - DIZZINESS [None]
  - THROMBOSIS [None]
  - OFF LABEL USE [None]
  - TREATMENT NONCOMPLIANCE [None]
  - PAIN [None]
  - DISEASE RECURRENCE [None]
  - OVERDOSE [None]
  - CARDIAC DISORDER [None]
  - POLYP [None]
  - BACK PAIN [None]
